FAERS Safety Report 17566060 (Version 1)
Quarter: 2020Q1

REPORT INFORMATION
  Report Type: Spontaneous
  Country: US (occurrence: US)
  Receive Date: 20200315
  Receipt Date: 20200315
  Transmission Date: 20200409
  Serious: Yes (Death)
  Sender: FDA-Public Use
  Company Number: None

PATIENT
  Age: 75 Year
  Sex: Female

DRUGS (2)
  1. ALYQ [Concomitant]
     Active Substance: TADALAFIL
  2. AMBRISENTAN 10MG ACTAVIS PHARMA [Suspect]
     Active Substance: AMBRISENTAN
     Indication: PULMONARY ARTERIAL HYPERTENSION
     Route: 048
     Dates: start: 20190826, end: 20200310

REACTIONS (1)
  - Death [None]

NARRATIVE: CASE EVENT DATE: 20200310
